FAERS Safety Report 25486674 (Version 1)
Quarter: 2025Q2

REPORT INFORMATION
  Report Type: Spontaneous
  Country: FR (occurrence: FR)
  Receive Date: 20250627
  Receipt Date: 20250627
  Transmission Date: 20250717
  Serious: Yes (Hospitalization, Other)
  Sender: BRISTOL-MYERS SQUIBB COMPANY
  Company Number: None

PATIENT
  Age: 66 Year
  Sex: Male
  Weight: 62 kg

DRUGS (2)
  1. KRAZATI [Suspect]
     Active Substance: ADAGRASIB
     Indication: Bronchial carcinoma
     Route: 048
     Dates: start: 20250402, end: 20250420
  2. KRAZATI [Suspect]
     Active Substance: ADAGRASIB
     Route: 034
     Dates: start: 20250421, end: 20250519

REACTIONS (2)
  - Gastrointestinal disorder [Recovered/Resolved]
  - Rash [Recovered/Resolved]

NARRATIVE: CASE EVENT DATE: 20250420
